FAERS Safety Report 21839640 (Version 2)
Quarter: 2023Q1

REPORT INFORMATION
  Report Type: Spontaneous
  Country: US (occurrence: US)
  Receive Date: 20230109
  Receipt Date: 20230223
  Transmission Date: 20230417
  Serious: No
  Sender: FDA-Public Use
  Company Number: US-BAUSCHBL-2023BNL000013

PATIENT
  Age: 68 Year
  Sex: Female

DRUGS (3)
  1. LOTEMAX SM [Suspect]
     Active Substance: LOTEPREDNOL ETABONATE
     Indication: Inflammation
     Dosage: 1 DROP IN EACH EYE THREE TIMES DAILY
     Route: 047
     Dates: end: 202212
  2. METOPROLOL [Concomitant]
     Active Substance: METOPROLOL
     Indication: Product used for unknown indication
  3. XARELTO [Concomitant]
     Active Substance: RIVAROXABAN
     Indication: Product used for unknown indication

REACTIONS (8)
  - Instillation site swelling [Recovered/Resolved]
  - Photophobia [Recovered/Resolved]
  - Nasal discomfort [Recovered/Resolved]
  - Irritability [Recovered/Resolved]
  - Instillation site discharge [Recovered/Resolved]
  - Instillation site irritation [Recovered/Resolved]
  - Instillation site erythema [Recovered/Resolved]
  - Instillation site pruritus [Recovering/Resolving]

NARRATIVE: CASE EVENT DATE: 20221201
